FAERS Safety Report 15179480 (Version 1)
Quarter: 2018Q3

REPORT INFORMATION
  Report Type: Report from Study
  Country: None (occurrence: CA)
  Receive Date: 20180723
  Receipt Date: 20180723
  Transmission Date: 20181010
  Serious: Yes (Other)
  Sender: FDA-Public Use
  Company Number: CA-ABBVIE-18S-028-2425266-00

PATIENT

DRUGS (1)
  1. LUPRON DEPOT [Suspect]
     Active Substance: LEUPROLIDE ACETATE
     Indication: MATERNAL EXPOSURE TIMING UNSPECIFIED
     Route: 064

REACTIONS (3)
  - Developmental delay [Not Recovered/Not Resolved]
  - Foetal exposure during pregnancy [Unknown]
  - Autism spectrum disorder [Not Recovered/Not Resolved]

NARRATIVE: CASE EVENT DATE: 201106
